FAERS Safety Report 15878528 (Version 2)
Quarter: 2019Q1

REPORT INFORMATION
  Report Type: Report from Study
  Country: None (occurrence: US)
  Receive Date: 20190128
  Receipt Date: 20190307
  Transmission Date: 20190417
  Serious: Yes (Hospitalization, Other)
  Sender: FDA-Public Use
  Company Number: US-ABBVIE-18K-163-2336123-00

PATIENT
  Sex: Female

DRUGS (6)
  1. HUMIRA [Suspect]
     Active Substance: ADALIMUMAB
     Indication: CROHN^S DISEASE
     Dosage: DAY 1
     Route: 058
     Dates: start: 20180413, end: 20180413
  2. HUMIRA [Suspect]
     Active Substance: ADALIMUMAB
     Indication: CROHN^S DISEASE
     Dosage: CITRATE FREE
     Route: 058
     Dates: start: 201807
  3. PREDNISONE. [Concomitant]
     Active Substance: PREDNISONE
     Indication: PRODUCT USED FOR UNKNOWN INDICATION
  4. HUMIRA [Suspect]
     Active Substance: ADALIMUMAB
     Route: 058
     Dates: start: 20180706, end: 2018
  5. HUMIRA [Suspect]
     Active Substance: ADALIMUMAB
     Dosage: DAY 15
     Route: 058
     Dates: start: 20180427, end: 20180427
  6. HUMIRA [Suspect]
     Active Substance: ADALIMUMAB
     Route: 058
     Dates: start: 201805, end: 2018

REACTIONS (28)
  - Viral skin infection [Unknown]
  - Fatigue [Not Recovered/Not Resolved]
  - Incorrect dose administered [Unknown]
  - Blepharospasm [Not Recovered/Not Resolved]
  - Nodule [Unknown]
  - Haematochezia [Recovered/Resolved]
  - Rectal haemorrhage [Not Recovered/Not Resolved]
  - Loss of personal independence in daily activities [Unknown]
  - Intestinal obstruction [Unknown]
  - Nail bed disorder [Not Recovered/Not Resolved]
  - Frequent bowel movements [Recovering/Resolving]
  - Hypoaesthesia [Unknown]
  - Abdominal discomfort [Unknown]
  - Pyrexia [Unknown]
  - Muscle spasms [Not Recovered/Not Resolved]
  - Injection site bruising [Not Recovered/Not Resolved]
  - Paraesthesia [Unknown]
  - Inflammation [Unknown]
  - Injection site pain [Unknown]
  - Abdominal distension [Unknown]
  - Nausea [Recovered/Resolved]
  - Oral herpes [Not Recovered/Not Resolved]
  - Proctitis herpes [Not Recovered/Not Resolved]
  - Sinusitis [Unknown]
  - Headache [Recovered/Resolved]
  - Diarrhoea [Recovering/Resolving]
  - Defaecation urgency [Unknown]
  - Anal incontinence [Not Recovered/Not Resolved]

NARRATIVE: CASE EVENT DATE: 2018
